FAERS Safety Report 16894736 (Version 1)
Quarter: 2019Q4

REPORT INFORMATION
  Report Type: Spontaneous
  Country: CN (occurrence: CN)
  Receive Date: 20191008
  Receipt Date: 20191008
  Transmission Date: 20200122
  Serious: Yes (Other)
  Sender: FDA-Public Use
  Company Number: CN-ASTRAZENECA-2019SF42233

PATIENT
  Age: 75 Year
  Sex: Female
  Weight: 55 kg

DRUGS (4)
  1. ESOMEPRAZOLE. [Suspect]
     Active Substance: ESOMEPRAZOLE MAGNESIUM
     Indication: UPPER GASTROINTESTINAL HAEMORRHAGE
     Dosage: 40MG Q5H
     Route: 042
  2. ESOMEPRAZOLE. [Suspect]
     Active Substance: ESOMEPRAZOLE MAGNESIUM
     Indication: GASTRIC MUCOSA ERYTHEMA
     Dosage: 40MG Q5H
     Route: 042
  3. ESOMEPRAZOLE. [Suspect]
     Active Substance: ESOMEPRAZOLE MAGNESIUM
     Indication: UPPER GASTROINTESTINAL HAEMORRHAGE
     Dosage: 40MG Q 0.2 D
     Route: 042
     Dates: start: 20190627, end: 20190703
  4. ESOMEPRAZOLE. [Suspect]
     Active Substance: ESOMEPRAZOLE MAGNESIUM
     Indication: GASTRIC MUCOSA ERYTHEMA
     Dosage: 40MG Q 0.2 D
     Route: 042
     Dates: start: 20190627, end: 20190703

REACTIONS (6)
  - Illusion [Recovering/Resolving]
  - Confusional state [Recovering/Resolving]
  - Aggression [Recovering/Resolving]
  - Depression [Recovering/Resolving]
  - Agitation [Recovering/Resolving]
  - Irritability [Recovering/Resolving]

NARRATIVE: CASE EVENT DATE: 20190701
